FAERS Safety Report 10203494 (Version 1)
Quarter: 2014Q2

REPORT INFORMATION
  Report Type: Spontaneous
  Country: US (occurrence: US)
  Receive Date: 20140529
  Receipt Date: 20140529
  Transmission Date: 20141212
  Serious: No
  Sender: FDA-Public Use
  Company Number: US-009507513-1405USA009547

PATIENT
  Age: 55 Year
  Sex: Female

DRUGS (3)
  1. HYDROCORTONE [Suspect]
     Indication: ADRENAL INSUFFICIENCY
     Dosage: 10 MG IN THE MORNING
     Route: 048
  2. HYDROCORTONE [Suspect]
     Dosage: 5 MG IN THE AFTERNOON
     Route: 048
  3. SALMETEROL [Concomitant]
     Indication: ASTHMA

REACTIONS (1)
  - Drug intolerance [Unknown]
